FAERS Safety Report 18817004 (Version 3)
Quarter: 2021Q3

REPORT INFORMATION
  Report Type: Spontaneous
  Country: US (occurrence: US)
  Receive Date: 20210201
  Receipt Date: 20210813
  Transmission Date: 20211014
  Serious: No
  Sender: FDA-Public Use
  Company Number: US-PFIZER INC-2020200477

PATIENT
  Age: 66 Year

DRUGS (3)
  1. RELPAX [Suspect]
     Active Substance: ELETRIPTAN HYDROBROMIDE
     Indication: HEADACHE
     Dosage: 40 MG, 2X/DAY (AS NEEDED, EVERY 12 HOURS)
     Route: 048
  2. RELPAX [Suspect]
     Active Substance: ELETRIPTAN HYDROBROMIDE
     Dosage: 20 MG, 2X/DAY (AS NEEDED, EVERY 12 HOURS)
  3. RELPAX [Suspect]
     Active Substance: ELETRIPTAN HYDROBROMIDE
     Dosage: 20 MG, AS NEEDED (1 PO, Q12 (EVERY 12))
     Route: 048

REACTIONS (3)
  - Migraine [Unknown]
  - Off label use [Unknown]
  - Stress [Unknown]
